FAERS Safety Report 8535024-6 (Version None)
Quarter: 2012Q3

REPORT INFORMATION
  Report Type: 
  Country: None (occurrence: None)
  Receive Date: 20120724
  Receipt Date: 20120717
  Transmission Date: 20120928
  Serious: Yes (Hospitalization, Other)
  Sender: FDA-Public Use
  Company Number: GB-PFIZER INC-2012171728

PATIENT
  Age: 44 Year
  Sex: Female
  Weight: 50 kg

DRUGS (3)
  1. DOXYCYCLINE MONOHYDRATE [Suspect]
     Indication: OTITIS MEDIA ACUTE
     Dosage: 200MG LOADING DOSE
     Route: 048
     Dates: start: 20120622, end: 20120622
  2. TRIMETHOPRIM [Suspect]
     Indication: URINARY TRACT INFECTION
     Dates: start: 20120625, end: 20120628
  3. LEVOTHYROXINE [Concomitant]

REACTIONS (2)
  - DRUG-INDUCED LIVER INJURY [None]
  - NAUSEA [None]
